FAERS Safety Report 19183005 (Version 1)
Quarter: 2021Q2

REPORT INFORMATION
  Report Type: Spontaneous
  Country: FR (occurrence: FR)
  Receive Date: 20210427
  Receipt Date: 20210427
  Transmission Date: 20210717
  Serious: Yes (Hospitalization)
  Sender: FDA-Public Use
  Company Number: FR-TEVA-2021-FR-1903892

PATIENT
  Age: 56 Year
  Sex: Female
  Weight: 80 kg

DRUGS (9)
  1. FOLINORAL 25 MG, GELULE [Concomitant]
     Active Substance: LEUCOVORIN CALCIUM
  2. FLUDARABINE TEVA 25 MG/ML, SOLUTION A DILUER POUR INJECTABLE OU PERFUS [Suspect]
     Active Substance: FLUDARABINE PHOSPHATE
     Indication: BONE MARROW CONDITIONING REGIMEN
     Dosage: CONCENTRATE FOR SOLUTION FOR INJECTION OR INFUSION , 56.5 MG
     Route: 042
     Dates: start: 20210304, end: 20210306
  3. ENDOXAN 1000 MG, LYOPHILISAT POUR SOLUTION INJECTABLE [Suspect]
     Active Substance: CYCLOPHOSPHAMIDE
     Indication: BONE MARROW CONDITIONING REGIMEN
     Dosage: LYOPHILISATE FOR SOLUTION FOR INJECTION , 945 MG
     Route: 042
     Dates: start: 20210304, end: 20210306
  4. YESCARTA [Suspect]
     Active Substance: AXICABTAGENE CILOLEUCEL
     Indication: DIFFUSE LARGE B-CELL LYMPHOMA RECURRENT
     Dosage: 200 MU
     Route: 042
     Dates: start: 20210309, end: 20210309
  5. SKENAN [Concomitant]
     Active Substance: MORPHINE SULFATE
     Dosage: PROLONGED?RELEASE MICROGRANULES IN HARD CAPSULES
  6. LANSOPRAZOLE. [Concomitant]
     Active Substance: LANSOPRAZOLE
  7. ACTISKENAN 10 MG, GELULE [Concomitant]
     Active Substance: MORPHINE SULFATE
  8. BACTRIM [Concomitant]
     Active Substance: SULFAMETHOXAZOLE\TRIMETHOPRIM
  9. VALACICLOVIR [Concomitant]
     Active Substance: VALACYCLOVIR HYDROCHLORIDE

REACTIONS (2)
  - Cytokine release syndrome [Recovered/Resolved]
  - Leukopenia [Recovered/Resolved]

NARRATIVE: CASE EVENT DATE: 20210312
